FAERS Safety Report 24236040 (Version 1)
Quarter: 2024Q3

REPORT INFORMATION
  Report Type: Spontaneous
  Country: PA (occurrence: PA)
  Receive Date: 20240822
  Receipt Date: 20240822
  Transmission Date: 20241016
  Serious: Yes (Other)
  Sender: SANDOZ
  Company Number: PA-002147023-NVSC2020PA195820

PATIENT
  Sex: Female
  Weight: 61.678 kg

DRUGS (17)
  1. BISOPROLOL [Suspect]
     Active Substance: BISOPROLOL\BISOPROLOL FUMARATE
     Dosage: 2.5 MG (ABOUT 4 YEARS AGO)
     Route: 065
  2. BISOPROLOL [Suspect]
     Active Substance: BISOPROLOL\BISOPROLOL FUMARATE
     Indication: Hypertension
     Dosage: 5 MG
     Route: 065
  3. FULVESTRANT [Suspect]
     Active Substance: FULVESTRANT
     Indication: Breast cancer
     Dosage: UNK UNK, QMO, (11 AUG)
     Route: 065
     Dates: start: 201811
  4. FULVESTRANT [Suspect]
     Active Substance: FULVESTRANT
     Indication: Neoplasm
     Dosage: 500 MG
     Route: 065
     Dates: start: 201811
  5. IRBESARTAN [Suspect]
     Active Substance: IRBESARTAN
     Indication: Hypertension
     Dosage: 300 MG (2 YEARS AGO)
     Route: 065
  6. KISQALI [Suspect]
     Active Substance: RIBOCICLIB
     Indication: Breast cancer metastatic
     Dosage: 2 DOSAGE FORM, QD (IT WILL BE 5 YEARS OLD)
     Route: 065
     Dates: start: 201811
  7. KISQALI [Suspect]
     Active Substance: RIBOCICLIB
     Dosage: 200 MG, QD
     Route: 048
  8. KISQALI [Suspect]
     Active Substance: RIBOCICLIB
     Dosage: 400 MG, QD (2 TABLETS OF 200 MG)
     Route: 048
     Dates: start: 20190701
  9. KISQALI [Suspect]
     Active Substance: RIBOCICLIB
     Dosage: 400 MG, QD (2 TABLETS OF 200 MG)
     Route: 048
     Dates: start: 20190701
  10. KISQALI [Suspect]
     Active Substance: RIBOCICLIB
     Dosage: 400 MG, QD
     Route: 048
     Dates: start: 2017
  11. KISQALI [Suspect]
     Active Substance: RIBOCICLIB
     Dosage: 400 MG, QD
     Route: 065
     Dates: start: 201811, end: 20230824
  12. KISQALI [Suspect]
     Active Substance: RIBOCICLIB
     Dosage: 600 MG, QD (3 TABLETS OF 200 MG)
     Route: 048
     Dates: start: 20190701
  13. KISQALI [Suspect]
     Active Substance: RIBOCICLIB
     Dosage: UNK
     Route: 065
     Dates: start: 20230106
  14. KISQALI [Suspect]
     Active Substance: RIBOCICLIB
     Dosage: UNK
     Route: 065
  15. ZOMETA [Suspect]
     Active Substance: ZOLEDRONIC ACID
     Indication: Neoplasm
     Dosage: UNK UNK, Q3MO
     Route: 065
  16. ZOMETA [Suspect]
     Active Substance: ZOLEDRONIC ACID
     Indication: Breast cancer
     Dosage: UNK
     Route: 065
     Dates: start: 201811
  17. CHLORPHENIRAMINE [Concomitant]
     Active Substance: CHLORPHENIRAMINE
     Indication: Product used for unknown indication
     Dosage: UNK
     Route: 065

REACTIONS (17)
  - Uveitis [Unknown]
  - Pigmentation disorder [Unknown]
  - Skin discolouration [Unknown]
  - Blood creatinine increased [Recovering/Resolving]
  - Vitiligo [Recovering/Resolving]
  - Hypersensitivity [Unknown]
  - Pruritus [Recovered/Resolved]
  - Skin disorder [Unknown]
  - Bone disorder [Unknown]
  - Hyperkeratosis [Unknown]
  - Skin lesion [Unknown]
  - Urticaria [Recovered/Resolved]
  - Erythema [Unknown]
  - Weight increased [Unknown]
  - Oedema peripheral [Unknown]
  - Hypertension [Not Recovered/Not Resolved]
  - Product supply issue [Unknown]

NARRATIVE: CASE EVENT DATE: 20190101
